FAERS Safety Report 6122062-6 (Version None)
Quarter: 2009Q1

REPORT INFORMATION
  Report Type: 
  Country: None (occurrence: None)
  Receive Date: 20090316
  Receipt Date: 20090316
  Transmission Date: 20090719
  Serious: No
  Sender: FDA-Public Use
  Company Number: None

PATIENT
  Age: 47 Year
  Sex: Female

DRUGS (1)
  1. TOPIRAMATE [Suspect]
     Indication: AFFECTIVE DISORDER
     Dosage: 25 MG BID PO
     Route: 048
     Dates: start: 20090205, end: 20090212

REACTIONS (2)
  - OEDEMA MOUTH [None]
  - OROPHARYNGEAL BLISTERING [None]
